FAERS Safety Report 22039175 (Version 3)
Quarter: 2023Q1

REPORT INFORMATION
  Report Type: Spontaneous
  Country: GB (occurrence: GB)
  Receive Date: 20230227
  Receipt Date: 20230315
  Transmission Date: 20230418
  Serious: Yes (Other)
  Sender: FDA-Public Use
  Company Number: GB-BAYER-2023A023384

PATIENT
  Age: 58 Year
  Sex: Female

DRUGS (1)
  1. MIRENA [Suspect]
     Active Substance: LEVONORGESTREL
     Indication: Genital haemorrhage
     Dosage: 20?G/DAY
     Route: 015
     Dates: start: 20200114, end: 20230131

REACTIONS (4)
  - Device breakage [Recovered/Resolved]
  - Post procedural haemorrhage [Recovered/Resolved]
  - Complication of device removal [Recovered/Resolved]
  - Off label use [None]

NARRATIVE: CASE EVENT DATE: 20230131
